FAERS Safety Report 16665930 (Version 1)
Quarter: 2019Q3

REPORT INFORMATION
  Report Type: Report from Study
  Country: US (occurrence: US)
  Receive Date: 20190804
  Receipt Date: 20190804
  Transmission Date: 20191004
  Serious: Yes (Death, Other)
  Sender: FDA-Public Use
  Company Number: US-BRISTOL-MYERS SQUIBB COMPANY-BMS-2019-074375

PATIENT
  Age: 56 Year
  Sex: Female

DRUGS (2)
  1. NIVOLUMAB [Suspect]
     Active Substance: NIVOLUMAB
     Indication: ADRENAL GLAND CANCER
     Dosage: 246 MILLIGRAM, Q3WK
     Route: 042
     Dates: start: 20190225
  2. YERVOY [Suspect]
     Active Substance: IPILIMUMAB
     Indication: ADRENAL GLAND CANCER
     Dosage: 83 MILLIGRAM, Q3WK
     Route: 042
     Dates: start: 20190225

REACTIONS (2)
  - Death [Fatal]
  - Intentional product use issue [Unknown]

NARRATIVE: CASE EVENT DATE: 20190715
